FAERS Safety Report 20993572 (Version 4)
Quarter: 2022Q3

REPORT INFORMATION
  Report Type: Spontaneous
  Country: RU (occurrence: RU)
  Receive Date: 20220622
  Receipt Date: 20220722
  Transmission Date: 20221027
  Serious: Yes (Other)
  Sender: FDA-Public Use
  Company Number: RU-NOVARTISPH-NVSC2022RU142779

PATIENT

DRUGS (16)
  1. OXALIPLATIN [Suspect]
     Active Substance: OXALIPLATIN
     Indication: Rectal adenocarcinoma
     Dosage: 85 MG/M2, CYCLIC (FOR 2 HOURS ON DAY 1) COURSE 1
     Route: 041
     Dates: start: 20190218
  2. OXALIPLATIN [Suspect]
     Active Substance: OXALIPLATIN
     Dosage: 85 MG/M2, CYCLIC (FOR 2 HOURS ON DAY 1) COURSE 2
     Route: 041
     Dates: start: 20190304
  3. OXALIPLATIN [Suspect]
     Active Substance: OXALIPLATIN
     Dosage: 85 MG/M2, CYCLIC (FOR 2 HOURS ON DAY 1) COURSE 3
     Route: 041
     Dates: start: 20190318
  4. OXALIPLATIN [Suspect]
     Active Substance: OXALIPLATIN
     Dosage: 85 MG/M2, CYCLIC (FOR 2 HOURS ON DAY 1) COURSE 4
     Route: 041
     Dates: start: 20190405
  5. LEUCOVORIN [Suspect]
     Active Substance: LEUCOVORIN
     Indication: Rectal adenocarcinoma
     Dosage: 400 MG/M2, CYCLIC (FOR 2 HOURS) COURSE1
     Route: 065
     Dates: start: 20190218
  6. LEUCOVORIN [Suspect]
     Active Substance: LEUCOVORIN
     Dosage: 400 MG/M2, CYCLIC (FOR 2 HOURS) COURSE2
     Route: 065
     Dates: start: 20190304
  7. LEUCOVORIN [Suspect]
     Active Substance: LEUCOVORIN
     Dosage: 400 MG/M2, CYCLIC (FOR 2 HOURS) COURSE3
     Route: 065
     Dates: start: 20190318
  8. LEUCOVORIN [Suspect]
     Active Substance: LEUCOVORIN
     Dosage: 400 MG/M2, CYCLIC (FOR 2 HOURS) COURSE4
     Route: 065
     Dates: start: 20190405
  9. FLUOROURACIL [Suspect]
     Active Substance: FLUOROURACIL
     Indication: Rectal adenocarcinoma
     Dosage: 400 MG/M2, CYCLIC AS A BOLUS COURSE 1
     Route: 040
     Dates: start: 20190218
  10. FLUOROURACIL [Suspect]
     Active Substance: FLUOROURACIL
     Dosage: 2400 MG/M2, CYCLIC (46-HOUR INFUSION) COURSE 1
     Route: 041
     Dates: start: 20190218
  11. FLUOROURACIL [Suspect]
     Active Substance: FLUOROURACIL
     Dosage: 400 MG/M2, CYCLIC AS A BOLUS COURSE 2
     Route: 040
     Dates: start: 20190304
  12. FLUOROURACIL [Suspect]
     Active Substance: FLUOROURACIL
     Dosage: 2400 MG/M2, CYCLIC (46-HOUR INFUSION) COURSE 2
     Route: 041
     Dates: start: 20190304
  13. FLUOROURACIL [Suspect]
     Active Substance: FLUOROURACIL
     Dosage: 400 MG/M2, CYCLIC AS A BOLUS COURSE 3
     Route: 040
     Dates: start: 20190318
  14. FLUOROURACIL [Suspect]
     Active Substance: FLUOROURACIL
     Dosage: 2400 MG/M2, CYCLIC (46-HOUR INFUSION) COURSE 3
     Route: 041
     Dates: start: 20190318
  15. FLUOROURACIL [Suspect]
     Active Substance: FLUOROURACIL
     Dosage: 400 MG/M2, CYCLIC AS A BOLUS COURSE 4
     Route: 040
     Dates: start: 20190405
  16. FLUOROURACIL [Suspect]
     Active Substance: FLUOROURACIL
     Dosage: 2400 MG/M2, CYCLIC (46-HOUR INFUSION) COURSE 4
     Route: 041
     Dates: start: 20190405

REACTIONS (1)
  - Polyneuropathy [Recovered/Resolved]
